FAERS Safety Report 9618129 (Version 1)
Quarter: 2013Q4

REPORT INFORMATION
  Report Type: Spontaneous
  Country: FR (occurrence: FR)
  Receive Date: 20131014
  Receipt Date: 20131014
  Transmission Date: 20140711
  Serious: Yes (Hospitalization)
  Sender: FDA-Public Use
  Company Number: FR-ROCHE-1287689

PATIENT
  Age: 60 Year
  Sex: Male

DRUGS (4)
  1. PEGASYS [Suspect]
     Indication: PRODUCT USED FOR UNKNOWN INDICATION
     Route: 058
  2. PEGASYS [Suspect]
     Route: 058
     Dates: end: 20130619
  3. COPEGUS [Suspect]
     Indication: PRODUCT USED FOR UNKNOWN INDICATION
     Dosage: 400 MG IN THE MORNING AND 600 MG IN THE EVENING
     Route: 048
     Dates: end: 20130626
  4. NEORECORMON [Concomitant]
     Route: 058
     Dates: end: 20130619

REACTIONS (1)
  - Congestive cardiomyopathy [Recovering/Resolving]
